FAERS Safety Report 4481121-4 (Version None)
Quarter: 2004Q4

REPORT INFORMATION
  Report Type: 
  Country: None (occurrence: None)
  Receive Date: 20041021
  Receipt Date: 20041018
  Transmission Date: 20050328
  Serious: Yes (Hospitalization)
  Sender: FDA-Public Use
  Company Number: BR-MERCK-0410BRA00374

PATIENT
  Age: 45 Year
  Sex: Female

DRUGS (2)
  1. VIOXX [Suspect]
     Indication: ARTHRITIS
     Route: 048
     Dates: start: 20040908, end: 20040912
  2. AMINOPHYLLINE [Concomitant]
     Route: 065

REACTIONS (5)
  - ASTHMA [None]
  - CHEST PAIN [None]
  - HEADACHE [None]
  - INFECTION [None]
  - OEDEMA PERIPHERAL [None]
